FAERS Safety Report 10566715 (Version 1)
Quarter: 2014Q4

REPORT INFORMATION
  Report Type: Spontaneous
  Country: US (occurrence: US)
  Receive Date: 20141105
  Receipt Date: 20141105
  Transmission Date: 20150529
  Serious: Yes (Other)
  Sender: FDA-Public Use
  Company Number: US-FRI-1000072054

PATIENT
  Age: 57 Year
  Sex: Male

DRUGS (6)
  1. FLAXSEED [Concomitant]
     Active Substance: FLAX SEED
  2. FISH OIL [Concomitant]
     Active Substance: FISH OIL
  3. RANITIDINE [Concomitant]
     Active Substance: RANITIDINE\RANITIDINE HYDROCHLORIDE
  4. FIBERCON [Concomitant]
     Active Substance: CALCIUM POLYCARBOPHIL
  5. LINZESS [Suspect]
     Active Substance: LINACLOTIDE
     Indication: IRRITABLE BOWEL SYNDROME
     Dosage: 145 MCG
     Route: 048
     Dates: start: 20141016, end: 20141017
  6. LYRICA [Concomitant]
     Active Substance: PREGABALIN
     Indication: ANXIETY

REACTIONS (5)
  - Abdominal pain [Recovered/Resolved]
  - Fatigue [Not Recovered/Not Resolved]
  - Diarrhoea [Recovered/Resolved]
  - Off label use [Recovered/Resolved]
  - Haematochezia [Recovered/Resolved]

NARRATIVE: CASE EVENT DATE: 20141016
